FAERS Safety Report 5688152-7 (Version None)
Quarter: 2008Q1

REPORT INFORMATION
  Report Type: 
  Country: None (occurrence: None)
  Receive Date: 20080327
  Receipt Date: 20080313
  Transmission Date: 20080703
  Serious: Yes (Other)
  Sender: FDA-Public Use
  Company Number: 8030772

PATIENT
  Age: 50 Year
  Sex: Female
  Weight: 72.6 kg

DRUGS (12)
  1. KEPPRA [Suspect]
     Indication: CONVULSION
     Dosage: 500 MG 2/D PO
     Route: 048
     Dates: start: 20080111, end: 20080205
  2. KEPPRA [Suspect]
     Indication: MIGRAINE
     Dosage: 500 MG 2/D PO
     Route: 048
     Dates: start: 20080111, end: 20080205
  3. KEPPRA [Suspect]
     Indication: CONVULSION
     Dosage: 1250 MG PO
     Route: 048
     Dates: start: 20080205, end: 20080205
  4. KEPPRA [Suspect]
     Indication: MIGRAINE
     Dosage: 1250 MG PO
     Route: 048
     Dates: start: 20080205, end: 20080205
  5. KEPPRA [Suspect]
     Indication: CONVULSION
     Dosage: 1000 MG 2/D PO
     Route: 048
     Dates: start: 20080206, end: 20080208
  6. KEPPRA [Suspect]
     Indication: MIGRAINE
     Dosage: 1000 MG 2/D PO
     Route: 048
     Dates: start: 20080206, end: 20080208
  7. KEPPRA [Suspect]
     Indication: CONVULSION
     Dosage: 1500 MG  PO
     Route: 048
     Dates: start: 20080208, end: 20080208
  8. KEPPRA [Suspect]
     Indication: MIGRAINE
     Dosage: 1500 MG  PO
     Route: 048
     Dates: start: 20080208, end: 20080208
  9. KEPPRA [Suspect]
     Indication: CONVULSION
     Dosage: 500 MG 2/D PO
     Route: 048
     Dates: start: 20080209
  10. KEPPRA [Suspect]
     Indication: MIGRAINE
     Dosage: 500 MG 2/D PO
     Route: 048
     Dates: start: 20080209
  11. LYRICA [Suspect]
     Indication: HEADACHE
     Dosage: 50 MG 3/D PO
     Route: 048
     Dates: start: 20080211, end: 20080212
  12. FUROSEMIDE [Concomitant]

REACTIONS (14)
  - AGITATION [None]
  - ANGER [None]
  - ANXIETY [None]
  - CHEST DISCOMFORT [None]
  - CRYING [None]
  - FATIGUE [None]
  - FEELING ABNORMAL [None]
  - FEELING OF BODY TEMPERATURE CHANGE [None]
  - HOMICIDAL IDEATION [None]
  - HYPERVENTILATION [None]
  - INSOMNIA [None]
  - IRRITABILITY [None]
  - OEDEMA PERIPHERAL [None]
  - SUICIDAL IDEATION [None]
